FAERS Safety Report 9695007 (Version 1)
Quarter: 2013Q4

REPORT INFORMATION
  Report Type: Spontaneous
  Country: US (occurrence: US)
  Receive Date: 20131119
  Receipt Date: 20131119
  Transmission Date: 20140711
  Serious: Yes (Other)
  Sender: FDA-Public Use
  Company Number: US-ASTRAZENECA-2013SE82883

PATIENT
  Age: 70 Year
  Sex: Female

DRUGS (6)
  1. ARIMIDEX [Suspect]
     Indication: BREAST CANCER
     Route: 048
  2. LOSARTAN [Concomitant]
     Dosage: DAILY
  3. LEVOTHYROXINE [Concomitant]
     Dosage: DAILY
  4. LORATADINE [Concomitant]
     Dosage: DAILY
  5. GABAPENTIN [Concomitant]
     Dosage: DAILY
  6. JANTOVEN [Concomitant]
     Indication: DEEP VEIN THROMBOSIS

REACTIONS (1)
  - Deep vein thrombosis [Unknown]
